FAERS Safety Report 9156869 (Version 1)
Quarter: 2013Q1

REPORT INFORMATION
  Report Type: Spontaneous
  Country: DK (occurrence: None)
  Receive Date: 20130206
  Receipt Date: 20130206
  Transmission Date: 20140127
  Serious: Yes (Other)
  Sender: FDA-Public Use
  Company Number: 2013MA000914

PATIENT
  Age: 30 Year
  Sex: Male

DRUGS (1)
  1. SERTRALINE HYDROCHLORIDE TABLETS, 100 MG (BASE) (AELLC) (SERTRALINE) [Suspect]
     Indication: DEPRESSION
     Route: 048
     Dates: start: 201202, end: 201301

REACTIONS (7)
  - Diarrhoea [None]
  - Dehydration [None]
  - Fatigue [None]
  - Abdominal distension [None]
  - Gastrointestinal pain [None]
  - Abnormal faeces [None]
  - Mucous stools [None]
